FAERS Safety Report 5046200-1 (Version None)
Quarter: 2006Q2

REPORT INFORMATION
  Report Type: 
  Country: None (occurrence: None)
  Receive Date: 20060629
  Receipt Date: 20060615
  Transmission Date: 20061013
  Serious: Yes (Hospitalization)
  Sender: FDA-Public Use
  Company Number: 2006068251

PATIENT
  Age: 62 Year
  Sex: Male
  Weight: 75.4 kg

DRUGS (7)
  1. SUTENT [Suspect]
     Indication: NON-SMALL CELL LUNG CANCER
     Dosage: 50 MG (50 MG 1 IN 1 D) ORAL
     Route: 048
     Dates: start: 20051001, end: 20051028
  2. GLIPIZIDE [Concomitant]
  3. ALBUTEROL [Concomitant]
  4. OXYCODONE (OXYCODONE) [Concomitant]
  5. ALLEGRA [Concomitant]
  6. METOPROLOL (METOPROLOL) [Concomitant]
  7. LESCOL [Concomitant]

REACTIONS (3)
  - DRUG TOXICITY [None]
  - MALIGNANT NEOPLASM PROGRESSION [None]
  - PLEURAL EFFUSION [None]
